FAERS Safety Report 5628585-8 (Version None)
Quarter: 2008Q1

REPORT INFORMATION
  Report Type: 
  Country: None (occurrence: None)
  Receive Date: 20080215
  Receipt Date: 20080204
  Transmission Date: 20080703
  Serious: Yes (Other)
  Sender: FDA-Public Use
  Company Number: US-PFIZER INC-2008011665

PATIENT
  Sex: Female
  Weight: 64.4 kg

DRUGS (10)
  1. DILANTIN [Suspect]
     Indication: CONVULSION
  2. LIPITOR [Concomitant]
  3. DETROL LA [Concomitant]
  4. PREMARIN [Concomitant]
  5. LANOXIN [Concomitant]
  6. ZOLOFT [Concomitant]
  7. COUMADIN [Concomitant]
  8. PROMETHAZINE [Concomitant]
  9. NITROGLYCERIN [Concomitant]
  10. LEVOTHYROXINE SODIUM [Concomitant]

REACTIONS (4)
  - MYOCARDIAL INFARCTION [None]
  - PETIT MAL EPILEPSY [None]
  - STENT PLACEMENT [None]
  - THYROID FUNCTION TEST ABNORMAL [None]
